FAERS Safety Report 4699003-1 (Version None)
Quarter: 2005Q2

REPORT INFORMATION
  Report Type: 
  Country: None (occurrence: None)
  Receive Date: 20050624
  Receipt Date: 20050601
  Transmission Date: 20051028
  Serious: Yes (Hospitalization, Other)
  Sender: FDA-Public Use
  Company Number: TR-NOVOPROD-244669

PATIENT
  Age: 27 Year
  Sex: Male

DRUGS (6)
  1. NOVOSEVEN [Suspect]
     Indication: FACTOR VIII DEFICIENCY
     Dosage: 90 UG/KG, X 6 QD
     Dates: start: 20050406, end: 20050502
  2. NOVOSEVEN [Suspect]
     Dosage: 90 UG/KG X 6 QD
     Dates: start: 20050517, end: 20050527
  3. NOVOSEVEN [Suspect]
     Dosage: 90 UG, 4 X QD
     Dates: start: 20050527
  4. PRIMAXIN [Concomitant]
     Dosage: 2 G, UNK
     Route: 042
     Dates: start: 20050525
  5. TRANEXAMIC ACID [Concomitant]
     Dosage: 2 G, UNK
     Route: 048
     Dates: start: 20050517
  6. FEIBA [Concomitant]

REACTIONS (2)
  - PAIN IN EXTREMITY [None]
  - SUBCLAVIAN VEIN THROMBOSIS [None]
